FAERS Safety Report 14318446 (Version 1)
Quarter: 2017Q4

REPORT INFORMATION
  Report Type: Spontaneous
  Country: RU (occurrence: RU)
  Receive Date: 20171222
  Receipt Date: 20171222
  Transmission Date: 20180321
  Serious: Yes (Hospitalization)
  Sender: FDA-Public Use
  Company Number: RU-ASTRAZENECA-2017SF29705

PATIENT
  Age: 70 Year
  Sex: Male
  Weight: 93 kg

DRUGS (10)
  1. RANITIDINE. [Concomitant]
     Active Substance: RANITIDINE
  2. BRILINTA [Suspect]
     Active Substance: TICAGRELOR
     Indication: STENT PLACEMENT
     Route: 048
     Dates: start: 201708
  3. BRILINTA [Suspect]
     Active Substance: TICAGRELOR
     Indication: MYOCARDIAL INFARCTION
     Route: 048
     Dates: start: 201708
  4. THROMBO ASS [Concomitant]
     Active Substance: ASPIRIN
  5. ALLAPININ [Concomitant]
  6. METOPROLOL. [Concomitant]
     Active Substance: METOPROLOL
  7. ATORVASTATIN [Concomitant]
     Active Substance: ATORVASTATIN
  8. ENALAPRIL [Concomitant]
     Active Substance: ENALAPRIL
  9. ENAP [Concomitant]
     Active Substance: ENALAPRIL
  10. NITROSORBIDE [Concomitant]

REACTIONS (2)
  - Angina pectoris [Unknown]
  - Angina unstable [Recovered/Resolved]

NARRATIVE: CASE EVENT DATE: 201711
